FAERS Safety Report 7792647 (Version 3)
Quarter: 2019Q1

REPORT INFORMATION
  Report Type: Spontaneous
  Country: FR (occurrence: FR)
  Receive Date: 20110131
  Receipt Date: 20190320
  Transmission Date: 20190418
  Serious: Yes (Hospitalization, Other)
  Sender: FDA-Public Use
  Company Number: FR-PFIZER INC-2010095703

PATIENT
  Age: 50 Year
  Sex: Female

DRUGS (14)
  1. LYRICA [Suspect]
     Active Substance: PREGABALIN
     Dosage: 150 MG, 2X/DAY
     Route: 048
     Dates: end: 20100708
  2. ORELOX [Suspect]
     Active Substance: CEFPODOXIME
     Indication: PHARYNGITIS
     Dosage: 900 MG, UNK
  3. TENORMINE [Concomitant]
     Active Substance: ATENOLOL
     Dosage: 50 MG, DAILY
  4. INIPOMP [Suspect]
     Active Substance: PANTOPRAZOLE SODIUM
     Dosage: 20 MG, 1X/DAY
     Route: 048
     Dates: end: 20100708
  5. CELLCEPT [Suspect]
     Active Substance: MYCOPHENOLATE MOFETIL\MYCOPHENOLATE MOFETIL HYDROCHLORIDE
     Indication: RENAL TRANSPLANT
     Dosage: 1 G, 2X/DAY
     Route: 048
  6. ORELOX [Suspect]
     Active Substance: CEFPODOXIME
     Indication: TONSILLITIS
     Dosage: 100 MG, 1X/DAY (QID)
     Route: 048
     Dates: start: 20100705, end: 20100708
  7. CORTANCYL [Concomitant]
     Active Substance: PREDNISONE
     Dosage: 5 MG, DAILY
  8. NEORAL [Concomitant]
     Active Substance: CYCLOSPORINE
     Dosage: 185 MG, DAILY
  9. APROVEL [Concomitant]
     Active Substance: IRBESARTAN
     Dosage: 75 MG, DAILY
  10. TARDYFERON B9 [FERROUS SULFATE;FOLIC ACID] [Concomitant]
     Active Substance: FERROUS SULFATE\FOLIC ACID
     Dosage: 2 DF, DAILY
  11. UVEDOSE [Concomitant]
     Active Substance: CHOLECALCIFEROL
     Dosage: 100000 IU, EVERY 15 DAYS
  12. ELISOR [Concomitant]
     Active Substance: PRAVASTATIN SODIUM
     Dosage: 20 MG, DAILY
  13. CELLCEPT [Suspect]
     Active Substance: MYCOPHENOLATE MOFETIL\MYCOPHENOLATE MOFETIL HYDROCHLORIDE
     Dosage: 750 MG, 2X/DAY
     Route: 048
  14. EUPRESSYL [Concomitant]
     Active Substance: URAPIDIL
     Dosage: 30 MG, DAILY

REACTIONS (1)
  - Neutropenia [Recovered/Resolved]

NARRATIVE: CASE EVENT DATE: 20100707
